FAERS Safety Report 16094971 (Version 2)
Quarter: 2019Q1

REPORT INFORMATION
  Report Type: Spontaneous
  Country: US (occurrence: US)
  Receive Date: 20190320
  Receipt Date: 20190327
  Transmission Date: 20190418
  Serious: Yes (Other)
  Sender: FDA-Public Use
  Company Number: US-HORIZON-DUE-0173-2019

PATIENT
  Age: 56 Year
  Sex: Female

DRUGS (2)
  1. TYLENOL [Concomitant]
     Active Substance: ACETAMINOPHEN
  2. DUEXIS [Suspect]
     Active Substance: FAMOTIDINE\IBUPROFEN
     Indication: ROTATOR CUFF REPAIR
     Dosage: 1 TAB TID

REACTIONS (8)
  - Expired product administered [Not Recovered/Not Resolved]
  - Insurance issue [Not Recovered/Not Resolved]
  - Pruritus [Unknown]
  - Gallbladder operation [Recovered/Resolved]
  - Insomnia [Recovered/Resolved]
  - Therapy cessation [Not Recovered/Not Resolved]
  - Inability to afford medication [Not Recovered/Not Resolved]
  - Off label use [Not Recovered/Not Resolved]
